FAERS Safety Report 17724669 (Version 1)
Quarter: 2020Q2

REPORT INFORMATION
  Report Type: Report from Study
  Country: None (occurrence: BR)
  Receive Date: 20200429
  Receipt Date: 20200429
  Transmission Date: 20200714
  Serious: Yes (Hospitalization, Other)
  Sender: FDA-Public Use
  Company Number: BR-ABBVIE-20K-020-3384256-00

PATIENT
  Sex: Male
  Weight: 50 kg

DRUGS (2)
  1. HUMIRA [Suspect]
     Active Substance: ADALIMUMAB
     Indication: CROHN^S DISEASE
     Dosage: 4 INJECTIONS ?LOADING DOSE
     Route: 058
     Dates: start: 20181114, end: 20181114
  2. HUMIRA [Suspect]
     Active Substance: ADALIMUMAB
     Dosage: UNSPECIFIC DOSE
     Route: 058
     Dates: end: 201911

REACTIONS (3)
  - Crohn^s disease [Recovering/Resolving]
  - Intestinal stenosis [Recovered/Resolved]
  - Nausea [Recovered/Resolved]

NARRATIVE: CASE EVENT DATE: 201906
